FAERS Safety Report 13375189 (Version 3)
Quarter: 2017Q2

REPORT INFORMATION
  Report Type: Spontaneous
  Country: US (occurrence: US)
  Receive Date: 20170327
  Receipt Date: 20170626
  Transmission Date: 20170830
  Serious: No
  Sender: FDA-Public Use
  Company Number: US-CLOVIS ONCOLOGY-CLO-2017-000109

PATIENT
  Age: 58 Year
  Sex: Female

DRUGS (4)
  1. SILICA [Concomitant]
     Active Substance: SILICON DIOXIDE
     Indication: NEOPLASM MALIGNANT
  2. SELENIUM [Concomitant]
     Active Substance: SELENIUM
     Indication: NEOPLASM MALIGNANT
  3. RUBRACA [Suspect]
     Active Substance: RUCAPARIB CAMSYLATE
     Indication: OVARIAN CANCER
     Dosage: 600 MG, BID
     Route: 048
  4. CHROMIUM [Concomitant]
     Active Substance: CHROMIC CHLORIDE\CHROMIUM
     Indication: NEOPLASM MALIGNANT

REACTIONS (7)
  - Rhinorrhoea [Recovered/Resolved]
  - Abdominal distension [Not Recovered/Not Resolved]
  - Weight increased [Unknown]
  - Nail discomfort [Not Recovered/Not Resolved]
  - Abdominal pain [Not Recovered/Not Resolved]
  - Neuropathy peripheral [Not Recovered/Not Resolved]
  - Nausea [Recovered/Resolved]

NARRATIVE: CASE EVENT DATE: 20170405
